FAERS Safety Report 19393716 (Version 1)
Quarter: 2021Q2

REPORT INFORMATION
  Report Type: Spontaneous
  Country: US (occurrence: US)
  Receive Date: 20210608
  Receipt Date: 20210608
  Transmission Date: 20210717
  Serious: Yes (Other)
  Sender: FDA-Public Use
  Company Number: None

PATIENT
  Sex: Male

DRUGS (2)
  1. TESTOSTERONE 1.62% GEL [Suspect]
     Active Substance: TESTOSTERONE
  2. TESTIM [Suspect]
     Active Substance: TESTOSTERONE

REACTIONS (1)
  - Therapy non-responder [None]
